FAERS Safety Report 11492189 (Version 3)
Quarter: 2015Q4

REPORT INFORMATION
  Report Type: Spontaneous
  Country: DZ (occurrence: None)
  Receive Date: 20150909
  Receipt Date: 20151102
  Transmission Date: 20160304
  Serious: Yes (Other)
  Sender: FDA-Public Use
  Company Number: 2015DZ0508

PATIENT
  Age: 8 Month
  Sex: Female

DRUGS (1)
  1. ORFADIN [Suspect]
     Active Substance: NITISINONE
     Indication: TYROSINAEMIA

REACTIONS (2)
  - Hepatic neoplasm [None]
  - Cytomegalovirus infection [None]
